FAERS Safety Report 5600731-1 (Version None)
Quarter: 2008Q1

REPORT INFORMATION
  Report Type: 
  Country: None (occurrence: None)
  Receive Date: 20080123
  Receipt Date: 20080117
  Transmission Date: 20080703
  Serious: Yes (Death)
  Sender: FDA-Public Use
  Company Number: CA-MERCK-0801CAN00168

PATIENT
  Age: 70 Year
  Sex: Male

DRUGS (3)
  1. ZETIA [Suspect]
     Indication: HYPERCHOLESTEROLAEMIA
     Route: 048
  2. ATORVASTATIN CALCIUM [Concomitant]
     Route: 065
  3. ROSUVASTATIN CALCIUM [Concomitant]
     Route: 065

REACTIONS (2)
  - DEATH [None]
  - LIVER DISORDER [None]
